FAERS Safety Report 19222615 (Version 2)
Quarter: 2022Q1

REPORT INFORMATION
  Report Type: Report from Study
  Country: CA (occurrence: CA)
  Receive Date: 20210506
  Receipt Date: 20220112
  Transmission Date: 20220423
  Serious: Yes (Other)
  Sender: FDA-Public Use
  Company Number: CA-JNJFOC-20210410315

PATIENT
  Age: 63 Year
  Sex: Female

DRUGS (12)
  1. UPTRAVI [Suspect]
     Active Substance: SELEXIPAG
     Indication: Pulmonary arterial hypertension
     Route: 048
     Dates: start: 20210318
  2. UPTRAVI [Suspect]
     Active Substance: SELEXIPAG
     Indication: Scleroderma
  3. ADCIRCA [Concomitant]
     Active Substance: TADALAFIL
  4. AMBRISENTAN [Concomitant]
     Active Substance: AMBRISENTAN
  5. NAPROXEN [Concomitant]
     Active Substance: NAPROXEN
  6. NEXIUM [Concomitant]
     Active Substance: ESOMEPRAZOLE MAGNESIUM
  7. OXYGEN [Concomitant]
     Active Substance: OXYGEN
  8. ADVIL [Concomitant]
     Active Substance: IBUPROFEN
  9. FLONASE [Concomitant]
     Active Substance: FLUTICASONE PROPIONATE
  10. IRON [Concomitant]
     Active Substance: IRON
  11. ASCORBIC ACID [Concomitant]
     Active Substance: ASCORBIC ACID
  12. ERGOCALCIFEROL [Concomitant]
     Active Substance: ERGOCALCIFEROL

REACTIONS (1)
  - Lung neoplasm [Not Recovered/Not Resolved]
